FAERS Safety Report 15883609 (Version 1)
Quarter: 2019Q1

REPORT INFORMATION
  Report Type: Spontaneous
  Country: US (occurrence: US)
  Receive Date: 20190128
  Receipt Date: 20190128
  Transmission Date: 20190417
  Serious: No
  Sender: FDA-Public Use
  Company Number: None

PATIENT
  Age: 51 Year
  Sex: Female
  Weight: 123.75 kg

DRUGS (1)
  1. LOSARTAN-HCTZ 50-12.50 MG [Suspect]
     Active Substance: HYDROCHLOROTHIAZIDE\LOSARTAN
     Indication: BLOOD PRESSURE INCREASED
     Dosage: ?          QUANTITY:1 TABLET(S);?
     Route: 048
     Dates: start: 20181001, end: 20190117

REACTIONS (9)
  - Eye disorder [None]
  - Discomfort [None]
  - Feeling hot [None]
  - Product complaint [None]
  - Tinnitus [None]
  - Product quality issue [None]
  - Head discomfort [None]
  - Impaired work ability [None]
  - Blood pressure increased [None]

NARRATIVE: CASE EVENT DATE: 20181017
